FAERS Safety Report 6339944-2 (Version None)
Quarter: 2009Q3

REPORT INFORMATION
  Report Type: 
  Country: None (occurrence: None)
  Receive Date: 20090903
  Receipt Date: 20090826
  Transmission Date: 20100115
  Serious: Yes (Hospitalization)
  Sender: FDA-Public Use
  Company Number: US-AMGEN-QUU361778

PATIENT
  Sex: Female

DRUGS (1)
  1. ENBREL [Suspect]
     Indication: ANKYLOSING SPONDYLITIS
     Route: 058
     Dates: start: 20050501

REACTIONS (5)
  - ANKYLOSING SPONDYLITIS [None]
  - CONVULSION [None]
  - DRUG INEFFECTIVE [None]
  - MIGRAINE [None]
  - VOMITING [None]
